FAERS Safety Report 9115083 (Version 1)
Quarter: 2013Q1

REPORT INFORMATION
  Report Type: Report from Study
  Country: CA (occurrence: CA)
  Receive Date: 20130208
  Receipt Date: 20130208
  Transmission Date: 20140127
  Serious: Yes (Other)
  Sender: FDA-Public Use
  Company Number: CA-JNJFOC-20130200358

PATIENT
  Age: 46 Year
  Sex: Female
  Weight: 113.7 kg

DRUGS (8)
  1. REMICADE [Suspect]
     Indication: CROHN^S DISEASE
     Route: 042
  2. ZOPICLONE [Concomitant]
     Route: 065
  3. DIFLUCAN [Concomitant]
     Route: 065
  4. TRAZODONE [Concomitant]
     Route: 065
  5. VITAMIN D [Concomitant]
     Route: 065
  6. METHOTREXATE [Concomitant]
     Route: 065
  7. VITAMIN B12 [Concomitant]
     Route: 065
  8. FOLIC ACID [Concomitant]
     Route: 065

REACTIONS (2)
  - Meniscus injury [Not Recovered/Not Resolved]
  - Ligament sprain [Not Recovered/Not Resolved]
